FAERS Safety Report 7337315-3 (Version None)
Quarter: 2011Q1

REPORT INFORMATION
  Report Type: 
  Country: None (occurrence: None)
  Receive Date: 20110308
  Receipt Date: 20110301
  Transmission Date: 20110831
  Serious: Yes (Other)
  Sender: FDA-Public Use
  Company Number: US-JNJFOC-20110301595

PATIENT
  Sex: Male
  Weight: 95.26 kg

DRUGS (7)
  1. FENTANYL-100 [Suspect]
     Indication: PAIN IN EXTREMITY
     Route: 062
  2. RAMIPRIL [Concomitant]
     Indication: HYPERTENSION
     Route: 048
  3. GABAPENTIN [Concomitant]
     Indication: MUSCLE SPASMS
     Route: 048
  4. AMITRIPTYLINE [Concomitant]
     Indication: SLEEP DISORDER
     Dosage: AT NIGHT
     Route: 048
  5. FENTANYL-100 [Suspect]
     Indication: BACK PAIN
     Route: 062
  6. OXYCODONE [Concomitant]
     Indication: BREAKTHROUGH PAIN
     Route: 048
  7. TEMAZEPAM [Concomitant]
     Indication: SLEEP DISORDER
     Dosage: AT NIGHT
     Route: 048

REACTIONS (2)
  - DIABETES MELLITUS [None]
  - BLOOD GLUCOSE INCREASED [None]
